FAERS Safety Report 13576818 (Version 2)
Quarter: 2017Q2

REPORT INFORMATION
  Report Type: Spontaneous
  Country: PE (occurrence: PE)
  Receive Date: 20170524
  Receipt Date: 20170614
  Transmission Date: 20170830
  Serious: Yes (Other)
  Sender: FDA-Public Use
  Company Number: PE-PFIZER INC-2016303278

PATIENT
  Age: 70 Year
  Sex: Female

DRUGS (2)
  1. OLMETEC [Suspect]
     Active Substance: OLMESARTAN MEDOXOMIL
  2. NORVASC [Suspect]
     Active Substance: AMLODIPINE BESYLATE
     Indication: BLOOD PRESSURE MEASUREMENT
     Dosage: 0.5 DF, 2X/DAY

REACTIONS (3)
  - Blood pressure decreased [Recovered/Resolved]
  - Lower limb fracture [Recovered/Resolved]
  - Fall [Recovered/Resolved]
